FAERS Safety Report 5377029-2 (Version None)
Quarter: 2007Q2

REPORT INFORMATION
  Report Type: 
  Country: None (occurrence: None)
  Receive Date: 20070628
  Receipt Date: 20070628
  Transmission Date: 20071010
  Serious: Yes (Hospitalization)
  Sender: FDA-Public Use
  Company Number: None

PATIENT
  Age: 85 Year
  Sex: Male

DRUGS (2)
  1. FUROSEMIDE [Suspect]
     Indication: CARDIAC FAILURE CONGESTIVE
     Dosage: 80MG BID PO
     Route: 048
     Dates: start: 20070503, end: 20070625
  2. METOLAZONE [Suspect]
     Indication: CARDIAC FAILURE CONGESTIVE
     Dosage: 2.5MG EVERY 4 DAYS PO
     Route: 048
     Dates: start: 20070503, end: 20070625

REACTIONS (4)
  - ASTHENIA [None]
  - BLOOD UREA NITROGEN/CREATININE RATIO INCREASED [None]
  - HYPOKALAEMIA [None]
  - HYPOTENSION [None]
